FAERS Safety Report 8909234 (Version 1)
Quarter: 2012Q4

REPORT INFORMATION
  Report Type: Spontaneous
  Country: FR (occurrence: None)
  Receive Date: 20121107
  Receipt Date: 20121107
  Transmission Date: 20130627
  Serious: Yes (Other)
  Sender: FDA-Public Use
  Company Number: 219244

PATIENT
  Age: 58 Year
  Sex: Male

DRUGS (1)
  1. INNOHEP (TINZAPARIN SODIUM) [Suspect]
     Indication: ARTHROSCOPY
     Route: 058

REACTIONS (1)
  - Deep vein thrombosis [None]
